FAERS Safety Report 8736906 (Version 2)
Quarter: 2012Q4

REPORT INFORMATION
  Report Type: 
  Country: US (occurrence: US)
  Receive Date: 20120822
  Receipt Date: 20120829
  Transmission Date: 20130627
  Serious: Yes (Death, Hospitalization)
  Sender: FDA-Public Use
  Company Number: US-BAYER-2012-084784

PATIENT
  Age: 26 Year
  Sex: Female

DRUGS (1)
  1. MIRENA [Suspect]
     Indication: CONTRACEPTION
     Dosage: 20 mcg/24hr, CONT
     Route: 015
     Dates: start: 200907, end: 20110226

REACTIONS (6)
  - Bacterial sepsis [Fatal]
  - Gastric cancer [Fatal]
  - Gastrooesophageal reflux disease [None]
  - Dyspnoea [None]
  - Ovarian disorder [None]
  - Ovarian cyst [None]
